FAERS Safety Report 21205741 (Version 1)
Quarter: 2022Q3

REPORT INFORMATION
  Report Type: Spontaneous
  Country: US (occurrence: None)
  Receive Date: 20220812
  Receipt Date: 20220812
  Transmission Date: 20221026
  Serious: No
  Sender: FDA-Public Use
  Company Number: 2022A284252

PATIENT
  Age: 95 Year
  Sex: Female

DRUGS (1)
  1. PRILOSEC [Suspect]
     Active Substance: OMEPRAZOLE MAGNESIUM
     Indication: Dehydration
     Dosage: 1 TABLET, MORNING, (FOR MORE THAN 14 DAYS)
     Route: 048

REACTIONS (4)
  - Diarrhoea [Unknown]
  - Product use in unapproved indication [Unknown]
  - Incorrect product administration duration [Unknown]
  - Intentional product misuse [Unknown]
